FAERS Safety Report 19066437 (Version 1)
Quarter: 2021Q1

REPORT INFORMATION
  Report Type: Spontaneous
  Country: US (occurrence: US)
  Receive Date: 20210328
  Receipt Date: 20210328
  Transmission Date: 20210420
  Serious: No
  Sender: FDA-Public Use
  Company Number: US-ASTRAZENECA-2021A153702

PATIENT
  Sex: Female
  Weight: 67.1 kg

DRUGS (1)
  1. BYDUREON BCISE [Suspect]
     Active Substance: EXENATIDE
     Indication: DIABETES MELLITUS
     Route: 058
     Dates: start: 20210217

REACTIONS (13)
  - Pain [Unknown]
  - Muscle spasms [Recovered/Resolved]
  - Ill-defined disorder [Not Recovered/Not Resolved]
  - Product dose omission issue [Unknown]
  - Stress [Unknown]
  - Nausea [Unknown]
  - Illness [Unknown]
  - Abdominal pain upper [Unknown]
  - Adverse drug reaction [Unknown]
  - COVID-19 [Unknown]
  - Tremor [Unknown]
  - Vision blurred [Unknown]
  - Headache [Unknown]
